FAERS Safety Report 7592032-X (Version None)
Quarter: 2011Q3

REPORT INFORMATION
  Report Type: 
  Country: None (occurrence: None)
  Receive Date: 20110705
  Receipt Date: 20110705
  Transmission Date: 20111222
  Serious: Yes (Hospitalization)
  Sender: FDA-Public Use
  Company Number: None

PATIENT
  Sex: Female
  Weight: 85.8 kg

DRUGS (3)
  1. NEULASTA [Suspect]
     Dosage: 36 MG
     Dates: end: 20110616
  2. DOXORUBICIN HYDROCHLORIDE [Suspect]
     Dosage: 693 MG
     Dates: end: 20110615
  3. CYCLOPHOSPHAMIDE [Suspect]
     Dosage: 6930 MG
     Dates: end: 20110615

REACTIONS (5)
  - BODY TEMPERATURE INCREASED [None]
  - NAUSEA [None]
  - DIARRHOEA [None]
  - VOMITING [None]
  - HAEMOGLOBIN DECREASED [None]
